FAERS Safety Report 8128794-2 (Version None)
Quarter: 2012Q1

REPORT INFORMATION
  Report Type: 
  Country: None (occurrence: None)
  Receive Date: 20120210
  Receipt Date: 20110301
  Transmission Date: 20120608
  Serious: Yes (Other)
  Sender: FDA-Public Use
  Company Number: US-BRISTOL-MYERS SQUIBB COMPANY-15578719

PATIENT
  Sex: Female

DRUGS (2)
  1. ORENCIA [Suspect]
     Dosage: NO INF 3
  2. CELEBREX [Suspect]

REACTIONS (2)
  - INFLUENZA [None]
  - DYSPNOEA [None]
